FAERS Safety Report 13104127 (Version 1)
Quarter: 2017Q1

REPORT INFORMATION
  Report Type: Spontaneous
  Country: US (occurrence: US)
  Receive Date: 20170111
  Receipt Date: 20170111
  Transmission Date: 20170428
  Serious: No
  Sender: FDA-Public Use
  Company Number: US-BAYER-2017-005649

PATIENT
  Age: 73 Year
  Sex: Female
  Weight: 78.01 kg

DRUGS (7)
  1. SENNA [Concomitant]
     Active Substance: SENNA LEAF\SENNOSIDES\SENNOSIDES A AND B
  2. MIRALAX [Suspect]
     Active Substance: POLYETHYLENE GLYCOL 3350
     Indication: GASTROINTESTINAL DISORDER
     Dosage: 1 DF, UNK
     Route: 048
  3. GAS-X [Concomitant]
     Active Substance: DIMETHICONE
  4. DULCOLAX PICOSULFAT [Concomitant]
  5. STOOL SOFTENER (DOCUSATE CALCIUM) [Concomitant]
     Active Substance: DOCUSATE CALCIUM
  6. AMITIZA [Concomitant]
     Active Substance: LUBIPROSTONE
  7. MYLANTA AR ACID REDUCER [Concomitant]
     Dosage: UNK

REACTIONS (2)
  - Drug ineffective [Unknown]
  - Product use issue [Unknown]
